FAERS Safety Report 7476679-7 (Version None)
Quarter: 2011Q2

REPORT INFORMATION
  Report Type: 
  Country: None (occurrence: None)
  Receive Date: 20110512
  Receipt Date: 20110509
  Transmission Date: 20111010
  Serious: Yes (Other)
  Sender: FDA-Public Use
  Company Number: NL-ABBOTT-11P-114-0724603-00

PATIENT
  Sex: Female

DRUGS (2)
  1. COLECALCIFEROL [Concomitant]
     Indication: VITAMIN SUPPLEMENTATION
     Dosage: UNKNOWN
     Route: 065
  2. HUMIRA [Suspect]
     Indication: RHEUMATOID ARTHRITIS
     Dosage: ONCE EOW
     Route: 058
     Dates: start: 20110301, end: 20110426

REACTIONS (6)
  - LIP DRY [None]
  - VASCULAR RUPTURE [None]
  - ABDOMINAL PAIN [None]
  - HYPERTENSION [None]
  - SKIN EXFOLIATION [None]
  - LOCAL SWELLING [None]
